FAERS Safety Report 8294710-6 (Version None)
Quarter: 2012Q2

REPORT INFORMATION
  Report Type: 
  Country: None (occurrence: None)
  Receive Date: 20120418
  Receipt Date: 20120409
  Transmission Date: 20120825
  Serious: Yes (Hospitalization)
  Sender: FDA-Public Use
  Company Number: JP-B.I. PHARMACEUTICALS,INC./RIDGEFIELD-2012-BP-06687NB

PATIENT
  Age: 65 Year
  Sex: Female

DRUGS (7)
  1. MICARDIS [Suspect]
     Indication: HYPERTENSION
     Route: 048
     Dates: end: 20120329
  2. BESASTAR SR [Suspect]
     Dates: end: 20120329
  3. THEO-DUR [Concomitant]
     Dates: end: 20120329
  4. PHENOBARBITAL TAB [Concomitant]
     Dates: end: 20120329
  5. CARVEDILOL [Concomitant]
     Dates: end: 20120329
  6. SPIRIVA [Concomitant]
     Dates: end: 20120329
  7. HALCION [Concomitant]
     Dates: end: 20120329

REACTIONS (1)
  - CHOLESTASIS [None]
